FAERS Safety Report 6331994 (Version 4)
Quarter: 2023Q2

REPORT INFORMATION
  Report Type: Spontaneous
  Country: FR (occurrence: FR)
  Receive Date: 20070613
  Receipt Date: 20230510
  Transmission Date: 20230721
  Serious: Yes (Death, Life-Threatening, Hospitalization)
  Sender: FDA-Public Use
  Company Number: FR-BAYER-200710351BFR

PATIENT
  Age: 74 Year
  Sex: Male

DRUGS (6)
  1. CIPROFLOXACIN [Interacting]
     Active Substance: CIPROFLOXACIN
     Indication: Respiratory tract infection
     Route: 048
     Dates: start: 20070323, end: 20070329
  2. FLUINDIONE [Interacting]
     Active Substance: FLUINDIONE
     Indication: Unevaluable event
     Dosage: 10 MG
     Route: 048
     Dates: end: 20070329
  3. FUROSEMIDE [Interacting]
     Active Substance: FUROSEMIDE
     Indication: Hypertension
     Dosage: LONG-TERM TREATMENT. INDICATION ALSO REPORTED AS ESSENTIAL HYPERTENSION.
     Route: 048
     Dates: end: 20070329
  4. CEFTRIAXONE SODIUM [Interacting]
     Active Substance: CEFTRIAXONE SODIUM
     Indication: Respiratory tract infection
     Dosage: STRENGTH REPORTED AS 2G/40ML
     Route: 042
     Dates: start: 20070323, end: 20070329
  5. CEFTRIAXONE SODIUM [Interacting]
     Active Substance: CEFTRIAXONE SODIUM
     Indication: Upper respiratory tract infection
  6. SOLU-MEDROL [Interacting]
     Active Substance: METHYLPREDNISOLONE SODIUM SUCCINATE
     Indication: Unevaluable event
     Route: 042
     Dates: start: 20070323, end: 20070329

REACTIONS (4)
  - Cerebral haemorrhage [Fatal]
  - International normalised ratio increased [Unknown]
  - Respiratory failure [Unknown]
  - Drug interaction [Fatal]

NARRATIVE: CASE EVENT DATE: 20070329
